FAERS Safety Report 5758385-X (Version None)
Quarter: 2008Q2

REPORT INFORMATION
  Report Type: 
  Country: None (occurrence: None)
  Receive Date: 20080604
  Receipt Date: 20080530
  Transmission Date: 20081010
  Serious: Yes (Other)
  Sender: FDA-Public Use
  Company Number: US-ABBOTT-08P-163-0446686-00

PATIENT
  Sex: Male
  Weight: 76.272 kg

DRUGS (17)
  1. HUMIRA [Suspect]
     Indication: PSORIATIC ARTHROPATHY
     Route: 058
     Dates: start: 20071101
  2. LISINOPRIL [Concomitant]
     Indication: HYPERTENSION
     Route: 048
  3. METHOTREXATE [Concomitant]
     Indication: DRUG USE FOR UNKNOWN INDICATION
  4. PREDNISONE TAB [Concomitant]
     Indication: ARTHRITIS
  5. AMLODIPINE [Concomitant]
     Indication: HYPERTENSION
  6. ATENOLOL [Concomitant]
     Indication: SUPRAVENTRICULAR EXTRASYSTOLES
     Dosage: HALF OF A HALF OF 25 MG
  7. DIETHYLSTILBESTROL [Concomitant]
     Indication: NEOPLASM MALIGNANT
     Dosage: 1-2 MG
  8. ASPIRIN [Concomitant]
     Indication: COAGULOPATHY
  9. PREVACID OMETRAZOLE [Concomitant]
     Indication: DRUG USE FOR UNKNOWN INDICATION
  10. MORPHINE [Concomitant]
     Indication: PAIN
  11. SENNAC [Concomitant]
     Indication: DRUG USE FOR UNKNOWN INDICATION
  12. DOCUSATE [Concomitant]
     Indication: CONSTIPATION PROPHYLAXIS
  13. SIMVIASTATIN [Concomitant]
     Indication: BLOOD CHOLESTEROL
  14. TOLTERODINE TARTRATE [Concomitant]
     Indication: HYPERTONIC BLADDER
     Dosage: 2MG IN MORNING 1 MG IN THE AFTERNOON
  15. FOLIC ACID [Concomitant]
     Indication: DRUG USE FOR UNKNOWN INDICATION
  16. OYSTER SHELL CALCIUM WITH VITAMIN D [Concomitant]
     Indication: DRUG USE FOR UNKNOWN INDICATION
  17. VALIUM [Concomitant]
     Indication: HYPERTONIC BLADDER

REACTIONS (3)
  - INGUINAL HERNIA [None]
  - PHARYNGOLARYNGEAL PAIN [None]
  - RASH [None]
